FAERS Safety Report 8988515 (Version 1)
Quarter: 2012Q4

REPORT INFORMATION
  Report Type: Spontaneous
  Country: US (occurrence: None)
  Receive Date: 20121224
  Receipt Date: 20121224
  Transmission Date: 20130627
  Serious: Yes (Other)
  Sender: FDA-Public Use
  Company Number: None

PATIENT
  Age: 59 Year
  Sex: Female
  Weight: 99.79 kg

DRUGS (2)
  1. LIPODOX 50 [Suspect]
     Indication: OVARIAN CANCER
     Dosage: 84mg  once -IVover 60min  IV Drip
     Route: 041
     Dates: start: 20121214, end: 20121214
  2. LIPODOX [Suspect]

REACTIONS (2)
  - Rash maculo-papular [None]
  - Type I hypersensitivity [None]
